FAERS Safety Report 8079710-3 (Version None)
Quarter: 2012Q1

REPORT INFORMATION
  Report Type: 
  Country: None (occurrence: None)
  Receive Date: 20120128
  Receipt Date: 20110718
  Transmission Date: 20120608
  Serious: No
  Sender: FDA-Public Use
  Company Number: US-ABBOTT-11P-163-0840307-00

PATIENT
  Weight: 85.352 kg

DRUGS (9)
  1. VITAMIN B-12 [Concomitant]
     Indication: VITAMIN SUPPLEMENTATION
  2. ASPIRIN [Concomitant]
     Indication: CARDIAC DISORDER
  3. METFFORMIN HYDROCHLORIDE [Concomitant]
     Indication: DIABETES MELLITUS
  4. MECLIZINE [Concomitant]
     Indication: MENIERE'S DISEASE
  5. ZOLOFT [Concomitant]
     Indication: STRESS
  6. DYAZIDE [Concomitant]
     Indication: MENIERE'S DISEASE
  7. HUMIRA [Suspect]
     Indication: PSORIASIS
     Route: 058
     Dates: start: 20110101
  8. CRESTOR [Concomitant]
     Indication: BLOOD CHOLESTEROL INCREASED
  9. PRILOSEC [Concomitant]
     Indication: DYSPEPSIA

REACTIONS (2)
  - DIARRHOEA [None]
  - INJECTION SITE PAIN [None]
